FAERS Safety Report 16614565 (Version 2)
Quarter: 2019Q3

REPORT INFORMATION
  Report Type: Spontaneous
  Country: US (occurrence: US)
  Receive Date: 20190723
  Receipt Date: 20190730
  Transmission Date: 20191004
  Serious: No
  Sender: FDA-Public Use
  Company Number: US-PFIZER INC-2019313003

PATIENT

DRUGS (1)
  1. GABAPENTIN. [Suspect]
     Active Substance: GABAPENTIN
     Dosage: UNK

REACTIONS (6)
  - Gait inability [Unknown]
  - Pain in extremity [Unknown]
  - Malaise [Unknown]
  - Drug ineffective [Unknown]
  - Disorientation [Unknown]
  - Dizziness [Unknown]
